FAERS Safety Report 8582085-4 (Version None)
Quarter: 2012Q3

REPORT INFORMATION
  Report Type: 
  Country: None (occurrence: None)
  Receive Date: 20120809
  Receipt Date: 20120806
  Transmission Date: 20120928
  Serious: Yes (Hospitalization, Other)
  Sender: FDA-Public Use
  Company Number: US-PFIZER INC-2012180343

PATIENT
  Age: 48 Year
  Sex: Male
  Weight: 70.295 kg

DRUGS (1)
  1. ACCURETIC [Suspect]
     Indication: HYPERTENSION
     Dosage: [QUINAPRIL HCL 10 MG/ HYDROCHLOROTHIAZIDE 12.5 MG], DAILY
     Route: 048
     Dates: start: 20110701

REACTIONS (2)
  - SPINAL CORD DISORDER [None]
  - PAIN [None]
